FAERS Safety Report 15061235 (Version 1)
Quarter: 2018Q2

REPORT INFORMATION
  Report Type: Spontaneous
  Country: US (occurrence: US)
  Receive Date: 20180625
  Receipt Date: 20180625
  Transmission Date: 20180711
  Serious: No
  Sender: FDA-Public Use
  Company Number: US-ROCHE-2063936

PATIENT
  Age: 59 Year
  Sex: Female
  Weight: 51.76 kg

DRUGS (2)
  1. XELODA [Suspect]
     Active Substance: CAPECITABINE
     Indication: METAPLASTIC BREAST CARCINOMA
     Dosage: MORNING AND EVENING ;ONGOING: NO
     Route: 048
     Dates: start: 20171130, end: 201801
  2. XELODA [Suspect]
     Active Substance: CAPECITABINE
     Dosage: 1000 MG IN AM, 1500 MG IN EVENING
     Route: 048
     Dates: start: 201801

REACTIONS (2)
  - Gait disturbance [Not Recovered/Not Resolved]
  - Peripheral swelling [Not Recovered/Not Resolved]

NARRATIVE: CASE EVENT DATE: 201801
